FAERS Safety Report 19459676 (Version 18)
Quarter: 2022Q4

REPORT INFORMATION
  Report Type: Report from Study
  Country: US (occurrence: US)
  Receive Date: 20210624
  Receipt Date: 20221209
  Transmission Date: 20230113
  Serious: Yes (Hospitalization, Other)
  Sender: FDA-Public Use
  Company Number: US-SHIRE-US201936637AA

PATIENT
  Sex: Female

DRUGS (4)
  1. HUMAN IMMUNOGLOBULIN G [Suspect]
     Active Substance: HUMAN IMMUNOGLOBULIN G
     Indication: Primary immunodeficiency syndrome
     Dosage: 20 GRAM, MONTHLY
     Route: 042
  2. HUMAN IMMUNOGLOBULIN G [Suspect]
     Active Substance: HUMAN IMMUNOGLOBULIN G
     Dosage: 20 GRAM, Q6WEEKS
     Route: 042
  3. HYQVIA [Suspect]
     Active Substance: HUMAN IMMUNOGLOBULIN G\HYALURONIDASE RECOMBINANT HUMAN
     Indication: Primary immunodeficiency syndrome
     Route: 065
  4. DOXYCYCLINE [Concomitant]
     Active Substance: DOXYCYCLINE
     Dosage: UNK
     Route: 065

REACTIONS (58)
  - Atrial fibrillation [Not Recovered/Not Resolved]
  - Blood pressure increased [Unknown]
  - Renal cyst [Unknown]
  - Lung cyst [Unknown]
  - Thyroid cyst [Unknown]
  - Asthma [Unknown]
  - Bronchitis [Unknown]
  - Pneumonia [Not Recovered/Not Resolved]
  - Peptic ulcer [Unknown]
  - Intracardiac thrombus [Not Recovered/Not Resolved]
  - Pseudomonas infection [Unknown]
  - Renal impairment [Unknown]
  - Haemorrhage [Unknown]
  - Upper respiratory tract infection [Not Recovered/Not Resolved]
  - Clostridium difficile infection [Unknown]
  - Barrett^s oesophagus [Unknown]
  - Respiratory tract infection [Unknown]
  - Hip fracture [Unknown]
  - Medical device site thrombosis [Unknown]
  - Eye haemorrhage [Unknown]
  - Gastric ulcer [Unknown]
  - Blood potassium increased [Unknown]
  - Renal disorder [Unknown]
  - Multimorbidity [Unknown]
  - Ear pain [Unknown]
  - Sinusitis [Not Recovered/Not Resolved]
  - Blood creatinine increased [Unknown]
  - Illness [Unknown]
  - Vomiting [Unknown]
  - Exposure to SARS-CoV-2 [Unknown]
  - Insomnia [Unknown]
  - Nausea [Unknown]
  - Chronic obstructive pulmonary disease [Unknown]
  - Blood pressure fluctuation [Unknown]
  - Malaise [Unknown]
  - Eye contusion [Unknown]
  - Visual impairment [Unknown]
  - Headache [Unknown]
  - Nasopharyngitis [Unknown]
  - Rhinorrhoea [Unknown]
  - Cough [Not Recovered/Not Resolved]
  - Condition aggravated [Not Recovered/Not Resolved]
  - Fatigue [Unknown]
  - Infection [Unknown]
  - Pain in extremity [Unknown]
  - Vaccination site erythema [Unknown]
  - Glycosylated haemoglobin increased [Unknown]
  - Localised infection [Unknown]
  - Haemoptysis [Unknown]
  - Productive cough [Unknown]
  - Oesophagitis [Unknown]
  - Decreased appetite [Unknown]
  - Abdominal distension [Unknown]
  - Back pain [Unknown]
  - Gastrointestinal disorder [Unknown]
  - Retinal vascular thrombosis [Not Recovered/Not Resolved]
  - Ulcer [Unknown]
  - Skin haemorrhage [Recovering/Resolving]

NARRATIVE: CASE EVENT DATE: 20100101
